FAERS Safety Report 15921724 (Version 1)
Quarter: 2019Q1

REPORT INFORMATION
  Report Type: Spontaneous
  Country: US (occurrence: US)
  Receive Date: 20190115
  Receipt Date: 20190115
  Transmission Date: 20190417
  Serious: No
  Sender: FDA-Public Use
  Company Number: None

PATIENT
  Age: 57 Year
  Sex: Female

DRUGS (3)
  1. BENLYSTA [Suspect]
     Active Substance: BELIMUMAB
     Indication: NEURALGIA
     Route: 058
     Dates: start: 201810
  2. BENLYSTA [Suspect]
     Active Substance: BELIMUMAB
     Indication: NEURALGIA
  3. BENLYSTA [Suspect]
     Active Substance: BELIMUMAB
     Indication: SYSTEMIC LUPUS ERYTHEMATOSUS
     Route: 058
     Dates: start: 201810

REACTIONS (3)
  - Balance disorder [None]
  - Joint injury [None]
  - Fall [None]
